FAERS Safety Report 5958854-3 (Version None)
Quarter: 2008Q4

REPORT INFORMATION
  Report Type: 
  Country: None (occurrence: None)
  Receive Date: 20081119
  Receipt Date: 20080828
  Transmission Date: 20090506
  Serious: Yes (Life-Threatening, Other)
  Sender: FDA-Public Use
  Company Number: GB-GENENTECH-271820

PATIENT
  Age: 4 Month
  Sex: Female

DRUGS (1)
  1. PULMOZYME [Suspect]
     Indication: ATELECTASIS
     Dosage: UNK
     Route: 055
     Dates: start: 20080513, end: 20080513

REACTIONS (1)
  - PULMONARY HAEMORRHAGE [None]
